FAERS Safety Report 6439627-4 (Version None)
Quarter: 2009Q4

REPORT INFORMATION
  Report Type: 
  Country: None (occurrence: None)
  Receive Date: 20091113
  Receipt Date: 20091105
  Transmission Date: 20100525
  Serious: Yes (Other)
  Sender: FDA-Public Use
  Company Number: US-JNJFOC-20060400276

PATIENT
  Sex: Female
  Weight: 86.41 kg

DRUGS (6)
  1. RISPERDAL [Suspect]
     Route: 048
  2. RISPERDAL [Suspect]
     Indication: DRUG USE FOR UNKNOWN INDICATION
     Route: 048
  3. SEROQUEL [Suspect]
     Route: 065
  4. SEROQUEL [Suspect]
     Route: 065
  5. SEROQUEL [Suspect]
     Indication: HYPERSOMNIA
     Route: 065
  6. EFFEXOR [Concomitant]
     Indication: DEPRESSION
     Route: 065

REACTIONS (7)
  - DRUG DIVERSION [None]
  - HEART RATE INCREASED [None]
  - INTENTIONAL OVERDOSE [None]
  - SEDATION [None]
  - SUICIDE ATTEMPT [None]
  - TYPE 2 DIABETES MELLITUS [None]
  - WEIGHT INCREASED [None]
